FAERS Safety Report 18507661 (Version 4)
Quarter: 2021Q2

REPORT INFORMATION
  Report Type: Report from Study
  Country: US (occurrence: US)
  Receive Date: 20201116
  Receipt Date: 20210619
  Transmission Date: 20210717
  Serious: Yes (Other)
  Sender: FDA-Public Use
  Company Number: US-TAKEDA-2020TUS046682

PATIENT
  Sex: Male
  Weight: 79 kg

DRUGS (31)
  1. PRINIVIL [Concomitant]
     Active Substance: LISINOPRIL
  2. LYRICA [Concomitant]
     Active Substance: PREGABALIN
  3. ALLEGRA [Concomitant]
     Active Substance: FEXOFENADINE HYDROCHLORIDE
  4. COQ [Concomitant]
  5. MUCINEX [Concomitant]
     Active Substance: GUAIFENESIN
  6. ACETAMINOPHEN. [Concomitant]
     Active Substance: ACETAMINOPHEN
  7. LMX4 [Concomitant]
     Active Substance: LIDOCAINE
  8. ALBUTEROL [SALBUTAMOL] [Concomitant]
     Active Substance: ALBUTEROL
  9. VALIUM [Concomitant]
     Active Substance: DIAZEPAM
  10. MIRALAX [Concomitant]
     Active Substance: POLYETHYLENE GLYCOL 3350
  11. RESTASIS [Concomitant]
     Active Substance: CYCLOSPORINE
  12. LEXAPRO [Concomitant]
     Active Substance: ESCITALOPRAM OXALATE
  13. VITAMIN D3 [Concomitant]
     Active Substance: CHOLECALCIFEROL
  14. DIGESTIVE ENZYMES V COMPLEX [Concomitant]
  15. TYLENOL [Concomitant]
     Active Substance: ACETAMINOPHEN
  16. OMEGA 3 [DOCOSAHEXAENOIC ACID;EICOSAPENTAENOIC ACID] [Concomitant]
     Active Substance: DOCONEXENT\ICOSAPENT
  17. REGLAN [Concomitant]
     Active Substance: METOCLOPRAMIDE HYDROCHLORIDE
  18. CUVITRU [Suspect]
     Active Substance: HUMAN IMMUNOGLOBULIN G
     Dosage: 8 GRAM, 1/WEEK
     Route: 058
     Dates: start: 20201006
  19. LIPITOR [Concomitant]
     Active Substance: ATORVASTATIN CALCIUM
  20. FLONASE [Concomitant]
     Active Substance: FLUTICASONE PROPIONATE
  21. PROVIGIL [Concomitant]
     Active Substance: MODAFINIL
  22. ATENOLOL. [Concomitant]
     Active Substance: ATENOLOL
  23. GLUCOSAMINE AND CHONDROITIN [Concomitant]
     Active Substance: CHONDROITIN SULFATE (BOVINE)\GLUCOSAMINE HYDROCHLORIDE
  24. PROSTATE COMPLEX [Concomitant]
  25. DIPHENHYDRAMINE. [Concomitant]
     Active Substance: DIPHENHYDRAMINE
  26. ESTER C [ASCORBIC ACID] [Concomitant]
     Active Substance: ASCORBIC ACID
  27. CUVITRU [Suspect]
     Active Substance: HUMAN IMMUNOGLOBULIN G
     Indication: IMMUNODEFICIENCY COMMON VARIABLE
     Dosage: 10 GRAM, 1/WEEK
     Route: 058
     Dates: start: 20201006
  28. EPINEPHRINE. [Concomitant]
     Active Substance: EPINEPHRINE
  29. SYMBICORT [Concomitant]
     Active Substance: BUDESONIDE\FORMOTEROL FUMARATE DIHYDRATE
  30. NEXIUM [Concomitant]
     Active Substance: ESOMEPRAZOLE MAGNESIUM
  31. PROBIOTIC [BIFIDOBACTERIUM INFANTIS;LACTOBACILLUS ACIDOPHILUS] [Concomitant]

REACTIONS (8)
  - Infusion site haemorrhage [Unknown]
  - Cough [Unknown]
  - Migraine [Unknown]
  - Fatigue [Unknown]
  - Pancreatic carcinoma [Unknown]
  - Infusion related reaction [Unknown]
  - Headache [Unknown]
  - Infusion site swelling [Unknown]
